FAERS Safety Report 24303953 (Version 1)
Quarter: 2024Q3

REPORT INFORMATION
  Report Type: Report from Study
  Country: CA (occurrence: CA)
  Receive Date: 20240910
  Receipt Date: 20240910
  Transmission Date: 20241017
  Serious: Yes (Other)
  Sender: PFIZER
  Company Number: CA-PFIZER INC-202400033866

PATIENT
  Age: 54 Year
  Sex: Male

DRUGS (3)
  1. BEVACIZUMAB [Suspect]
     Active Substance: BEVACIZUMAB
     Dosage: UNK
     Route: 042
  2. LONSURF [Suspect]
     Active Substance: TIPIRACIL HYDROCHLORIDE\TRIFLURIDINE
     Indication: Colorectal cancer metastatic
     Dosage: 75 MG, 2X/DAY
     Route: 048
  3. LONSURF [Suspect]
     Active Substance: TIPIRACIL HYDROCHLORIDE\TRIFLURIDINE
     Dosage: 65 MG, 2X/DAY
     Route: 048

REACTIONS (7)
  - Hypotension [Unknown]
  - Neutrophil count decreased [Unknown]
  - Bedridden [Unknown]
  - COVID-19 [Unknown]
  - Condition aggravated [Unknown]
  - Haematochezia [Unknown]
  - Therapy interrupted [Unknown]
